FAERS Safety Report 8252019-0 (Version None)
Quarter: 2012Q2

REPORT INFORMATION
  Report Type: 
  Country: None (occurrence: None)
  Receive Date: 20120402
  Receipt Date: 20110323
  Transmission Date: 20120825
  Serious: No
  Sender: FDA-Public Use
  Company Number: US-ABBOTT-11P-163-0804341-00

PATIENT
  Sex: Male
  Weight: 93.181 kg

DRUGS (2)
  1. TESTOSTERONE [Suspect]
     Indication: BLOOD TESTOSTERONE DECREASED
     Dosage: DAILY DOSE: 10 GRAM(S)
     Route: 062
  2. FINASTERIDE [Suspect]
     Indication: PROSTATOMEGALY
     Dosage: DAILY DOSE:  UNKNOWN, FREQUENCY: ONCE A DAY
     Route: 065
     Dates: start: 20100501, end: 20101001

REACTIONS (4)
  - HAIR GROWTH ABNORMAL [None]
  - PROSTATOMEGALY [None]
  - LOSS OF LIBIDO [None]
  - THERAPEUTIC RESPONSE DECREASED [None]
